FAERS Safety Report 4634275-0 (Version None)
Quarter: 2005Q2

REPORT INFORMATION
  Report Type: 
  Country: None (occurrence: None)
  Receive Date: 20050411
  Receipt Date: 20050307
  Transmission Date: 20051028
  Serious: Yes (Life-Threatening, Hospitalization)
  Sender: FDA-Public Use
  Company Number: 2002127132FR

PATIENT
  Age: 35 Year
  Sex: Female

DRUGS (3)
  1. CELECOXIB                (CELECOXIB) [Suspect]
     Indication: ILL-DEFINED DISORDER
     Dosage: AS NECESSARY, ORAL
     Route: 048
     Dates: end: 20020815
  2. PROPOXYPHENE HCL [Concomitant]
  3. FEMODENE           (ETHINYLESTRADIOL, GESTODENE) [Concomitant]

REACTIONS (2)
  - ANAPHYLACTIC SHOCK [None]
  - ANGIONEUROTIC OEDEMA [None]
